FAERS Safety Report 7420647-8 (Version None)
Quarter: 2011Q2

REPORT INFORMATION
  Report Type: 
  Country: None (occurrence: None)
  Receive Date: 20110418
  Receipt Date: 20110407
  Transmission Date: 20111010
  Serious: Yes (Hospitalization)
  Sender: FDA-Public Use
  Company Number: JP-ROCHE-683683

PATIENT
  Sex: Female
  Weight: 43.6 kg

DRUGS (23)
  1. TOCILIZUMAB [Suspect]
     Route: 041
     Dates: start: 20091209, end: 20091209
  2. TOCILIZUMAB [Suspect]
     Route: 041
     Dates: start: 20100407, end: 20100407
  3. ISONIAZID [Concomitant]
     Dosage: DOSE FORM: PERORAL AGENT
     Route: 048
     Dates: start: 20090615
  4. TOCILIZUMAB [Suspect]
     Route: 041
     Dates: start: 20091014, end: 20091014
  5. TOCILIZUMAB [Suspect]
     Dosage: DRUG DISCONTINUED.
     Route: 041
     Dates: start: 20100113, end: 20100113
  6. PREDNISOLONE [Concomitant]
     Dosage: DOSE FORM: PERORAL AGENT
     Route: 048
     Dates: start: 20090904
  7. TOCILIZUMAB [Suspect]
     Indication: RHEUMATOID ARTHRITIS
     Route: 041
     Dates: start: 20090715, end: 20090715
  8. TOCILIZUMAB [Suspect]
     Route: 041
     Dates: start: 20100303, end: 20100303
  9. TOCILIZUMAB [Suspect]
     Route: 041
     Dates: start: 20100609, end: 20100609
  10. TOCILIZUMAB [Suspect]
     Route: 041
     Dates: start: 20090812, end: 20090812
  11. TOCILIZUMAB [Suspect]
     Route: 041
     Dates: start: 20091111, end: 20091111
  12. TOCILIZUMAB [Suspect]
     Route: 041
     Dates: start: 20100903, end: 20100903
  13. PREDNISOLONE [Concomitant]
     Dosage: DOSE FORM: PERORAL AGENT
     Route: 048
     Dates: end: 20090903
  14. TOCILIZUMAB [Suspect]
     Route: 041
     Dates: start: 20090909, end: 20090909
  15. TOCILIZUMAB [Suspect]
     Route: 041
     Dates: start: 20100507, end: 20100507
  16. TOCILIZUMAB [Suspect]
     Route: 041
     Dates: start: 20100804, end: 20100804
  17. TOCILIZUMAB [Suspect]
     Route: 041
     Dates: start: 20101105, end: 20101105
  18. TOCILIZUMAB [Suspect]
     Route: 041
     Dates: start: 20101001, end: 20101001
  19. ETODOLAC [Concomitant]
     Route: 048
     Dates: end: 20090929
  20. TOCILIZUMAB [Suspect]
     Dosage: DOSAGE IS UNCERTAIN.
     Route: 041
     Dates: start: 20100203, end: 20100203
  21. TOCILIZUMAB [Suspect]
     Route: 041
     Dates: start: 20100707, end: 20100707
  22. POSTERISAN [Concomitant]
     Dosage: REPORTED DRUG: POSTERISAN(POSTERISAN FORTE),DOSE FORM: OINTMENT AND CREAM
     Route: 061
  23. ACTONEL [Concomitant]
     Dosage: REPORTED DRUG: ACTONEL(RISEDRONATE)
     Route: 048

REACTIONS (2)
  - PRINZMETAL ANGINA [None]
  - BASAL CELL CARCINOMA [None]
